FAERS Safety Report 9614255 (Version 1)
Quarter: 2013Q4

REPORT INFORMATION
  Report Type: Spontaneous
  Country: US (occurrence: US)
  Receive Date: 20131011
  Receipt Date: 20131011
  Transmission Date: 20140711
  Serious: Yes (Other)
  Sender: FDA-Public Use
  Company Number: US-BRISTOL-MYERS SQUIBB COMPANY-19519032

PATIENT
  Age: 66 Year
  Sex: Male
  Weight: 68.03 kg

DRUGS (4)
  1. PRAVASTATIN SODIUM [Suspect]
     Dates: start: 2013, end: 201308
  2. ALLOPURINOL [Concomitant]
     Indication: NEPHROLITHIASIS
  3. ATENOLOL [Concomitant]
  4. COUMADIN [Concomitant]
     Indication: COAGULOPATHY

REACTIONS (1)
  - Colitis ulcerative [Recovered/Resolved]
